FAERS Safety Report 19112538 (Version 6)
Quarter: 2021Q3

REPORT INFORMATION
  Report Type: Report from Study
  Country: US (occurrence: US)
  Receive Date: 20210408
  Receipt Date: 20210902
  Transmission Date: 20211014
  Serious: Yes (Death, Life-Threatening, Hospitalization)
  Sender: FDA-Public Use
  Company Number: US-CELGENEUS-USA-20210401065

PATIENT
  Age: 80 Year
  Sex: Female
  Weight: 66 kg

DRUGS (34)
  1. ALLOPURINOL. [Concomitant]
     Active Substance: ALLOPURINOL
     Indication: PROPHYLAXIS
     Dosage: 300 MG X 1 X 1 DAYS
     Route: 048
     Dates: start: 20210319, end: 20210330
  2. CALCIUM CARBONATE. [Concomitant]
     Active Substance: CALCIUM CARBONATE
     Indication: PROPHYLAXIS
     Dosage: 1500 MG X 3 X 1 DAYS
     Route: 048
     Dates: start: 20210319, end: 20210328
  3. EXEMESTANE. [Concomitant]
     Active Substance: EXEMESTANE
     Indication: BREAST CANCER
     Dosage: 25 MG X 1 X 1 DAYS
     Route: 048
     Dates: start: 20200501, end: 20210311
  4. ONDANSETRON [Concomitant]
     Active Substance: ONDANSETRON
     Dosage: 4 MG X PRN
     Route: 042
     Dates: start: 20210403, end: 20210403
  5. CC?90009 [Suspect]
     Active Substance: INVESTIGATIONAL PRODUCT
     Indication: ACUTE MYELOID LEUKAEMIA
     Dosage: 3 MG X 1 X 1 DAYS
     Route: 042
     Dates: start: 20210322, end: 20210322
  6. CC?90009 [Suspect]
     Active Substance: INVESTIGATIONAL PRODUCT
     Dosage: 3 MG X 1 X 1 DAYS
     Route: 042
     Dates: start: 20210326, end: 20210326
  7. AZACITIDINE. [Suspect]
     Active Substance: AZACITIDINE
     Dosage: 135 MG X 1 X 1 DAYS
     Route: 042
     Dates: start: 20210325, end: 20210325
  8. CEFEPIME [Concomitant]
     Active Substance: CEFEPIME HYDROCHLORIDE
     Indication: PROPHYLAXIS
     Dosage: 1000 MG X 2 X 1 DAYS
     Route: 042
     Dates: start: 20210325, end: 20210329
  9. CEFEPIME [Concomitant]
     Active Substance: CEFEPIME HYDROCHLORIDE
     Indication: ADVERSE EVENT
     Dosage: 2000 MG X ONCE
     Route: 042
     Dates: start: 20210403, end: 20210403
  10. LIDOCAINE. [Concomitant]
     Active Substance: LIDOCAINE
     Dosage: 10 ML X ONCE
     Route: 058
     Dates: start: 20210326, end: 20210326
  11. METFORMIN [Concomitant]
     Active Substance: METFORMIN HYDROCHLORIDE
     Indication: TYPE 2 DIABETES MELLITUS
     Dosage: 500 MG X 1 X 1 DAYS
     Route: 048
     Dates: start: 20201120
  12. ONDANSETRON [Concomitant]
     Active Substance: ONDANSETRON
     Dosage: 16 MG X ONCE
     Route: 048
     Dates: start: 20210321, end: 20210321
  13. ONDANSETRON [Concomitant]
     Active Substance: ONDANSETRON
     Dosage: 4 MG X PRN
     Route: 042
     Dates: start: 20210327, end: 20210328
  14. CHOLECALCIFEROL [Concomitant]
     Active Substance: CHOLECALCIFEROL
     Indication: PROPHYLAXIS
     Dosage: 2000 U X 1 X 1 DAYS
     Route: 048
     Dates: start: 20190104
  15. CHOLECALCIFEROL [Concomitant]
     Active Substance: CHOLECALCIFEROL
     Dosage: 1000 U X 1 X 1 DAYS
     Route: 048
     Dates: start: 20210319, end: 20210330
  16. LIDOCAINE. [Concomitant]
     Active Substance: LIDOCAINE
     Indication: CENTRAL VENOUS CATHETERISATION
     Dosage: 30 ML X ONCE
     Route: 058
     Dates: start: 20210317, end: 20210317
  17. ONDANSETRON [Concomitant]
     Active Substance: ONDANSETRON
     Indication: PROPHYLAXIS
     Dosage: 16 MG X ONCE
     Route: 048
     Dates: start: 20210319, end: 20210319
  18. ONDANSETRON [Concomitant]
     Active Substance: ONDANSETRON
     Dosage: 16 MG X ONCE
     Route: 048
     Dates: start: 20210325, end: 20210325
  19. ACETAMINOPHEN. [Concomitant]
     Active Substance: ACETAMINOPHEN
     Indication: PROPHYLAXIS
     Dosage: 650 MG X ONCE
     Route: 048
     Dates: start: 20210402, end: 20210402
  20. INSULIN LISPRO [Concomitant]
     Active Substance: INSULIN LISPRO
     Indication: TYPE 2 DIABETES MELLITUS
     Dosage: 1?2 U X 1 X 1 DAYS
     Route: 058
     Dates: start: 20210318, end: 20210322
  21. ONDANSETRON [Concomitant]
     Active Substance: ONDANSETRON
     Dosage: 4 MG X ONCE
     Route: 042
     Dates: start: 20210403, end: 20210403
  22. AZACITIDINE. [Suspect]
     Active Substance: AZACITIDINE
     Indication: ACUTE MYELOID LEUKAEMIA
     Dosage: 135 MG X 1 X 1 DAYS
     Route: 042
     Dates: start: 20210319, end: 20210319
  23. CALCITRIOL. [Concomitant]
     Active Substance: CALCITRIOL
     Indication: PROPHYLAXIS
     Dosage: 0.25 UG X 1 X 1 DAYS
     Route: 048
     Dates: start: 20210316, end: 20210330
  24. ONDANSETRON [Concomitant]
     Active Substance: ONDANSETRON
     Indication: ADVERSE EVENT
     Dosage: 16 MG X ONCE
     Route: 048
     Dates: start: 20210320, end: 20210320
  25. ONDANSETRON [Concomitant]
     Active Substance: ONDANSETRON
     Dosage: 16 MG X ONCE
     Route: 048
     Dates: start: 20210322, end: 20210322
  26. VENETOCLAX. [Suspect]
     Active Substance: VENETOCLAX
     Indication: ACUTE MYELOID LEUKAEMIA
     Dosage: 100 MG X 1 X 1 DAYS
     Route: 048
     Dates: start: 20210319, end: 20210319
  27. VENETOCLAX. [Suspect]
     Active Substance: VENETOCLAX
     Dosage: 400 MG X 1 X 1 DAYS
     Route: 048
     Dates: start: 20210321, end: 20210402
  28. LEVOTHYROXINE. [Concomitant]
     Active Substance: LEVOTHYROXINE
     Indication: HYPOTHYROIDISM
     Dosage: 125 UG X 1 X 1 DAYS
     Route: 048
     Dates: start: 2010
  29. AMOXICILLIN?CLAVULANATE [Concomitant]
     Active Substance: AMOXICILLIN\CLAVULANIC ACID
     Indication: PROPHYLAXIS
     Dosage: 1 TABLET X 2 X 1 DAYS
     Route: 048
     Dates: start: 20210309
  30. DIPHENHYDRAMINE. [Concomitant]
     Active Substance: DIPHENHYDRAMINE
     Indication: PROPHYLAXIS
     Dosage: 25 MG X ONCE
     Route: 048
     Dates: start: 20210402, end: 20210402
  31. ONDANSETRON [Concomitant]
     Active Substance: ONDANSETRON
     Dosage: 16 MG X ONCE
     Route: 048
     Dates: start: 20210323, end: 20210323
  32. ONDANSETRON [Concomitant]
     Active Substance: ONDANSETRON
     Dosage: 16 MG X ONCE
     Route: 048
     Dates: start: 20210324, end: 20210324
  33. ONDANSETRON [Concomitant]
     Active Substance: ONDANSETRON
     Dosage: 16 MG X ONCE
     Route: 048
     Dates: start: 20210326, end: 20210326
  34. VALACYCLOVIR [Concomitant]
     Active Substance: VALACYCLOVIR HYDROCHLORIDE
     Indication: PROPHYLAXIS
     Dosage: 500 MG X 1 X 1 DAYS
     Route: 048
     Dates: start: 20181005, end: 20210330

REACTIONS (1)
  - Sepsis [Fatal]

NARRATIVE: CASE EVENT DATE: 20210403
